FAERS Safety Report 8875264 (Version 1)
Quarter: 2012Q4

REPORT INFORMATION
  Report Type: 
  Country: US (occurrence: US)
  Receive Date: 20121026
  Receipt Date: 20121026
  Transmission Date: 20130627
  Serious: No
  Sender: FDA-Public Use
  Company Number: US-AMGEN-USASP2012044777

PATIENT
  Age: 64 Year
  Weight: 240 kg

DRUGS (1)
  1. ENBREL [Suspect]
     Indication: PRODUCT USED FOR UNKNOWN INDICATION
     Dosage: 50 mg/ml, qwk
     Route: 058

REACTIONS (3)
  - Muscle spasms [Unknown]
  - Night sweats [Unknown]
  - Hypersomnia [Unknown]
